FAERS Safety Report 5848704-8 (Version None)
Quarter: 2008Q3

REPORT INFORMATION
  Report Type: 
  Country: None (occurrence: None)
  Receive Date: 20080814
  Receipt Date: 20080801
  Transmission Date: 20090109
  Serious: Yes (Hospitalization)
  Sender: FDA-Public Use
  Company Number: 1022556-2008-00597

PATIENT
  Sex: Female

DRUGS (1)
  1. UNISOM [Suspect]
     Indication: SLEEP DISORDER
     Dosage: 32 CAPLETS, 1X, ORAL
     Route: 048

REACTIONS (3)
  - GRAND MAL CONVULSION [None]
  - INTENTIONAL OVERDOSE [None]
  - SUICIDE ATTEMPT [None]
